FAERS Safety Report 5428416-5 (Version None)
Quarter: 2007Q3

REPORT INFORMATION
  Report Type: 
  Country: None (occurrence: None)
  Receive Date: 20070828
  Receipt Date: 20030818
  Transmission Date: 20080115
  Serious: Yes (Hospitalization)
  Sender: FDA-Public Use
  Company Number: PL-MERCK-96069500

PATIENT
  Age: 52 Year
  Sex: Female

DRUGS (1)
  1. ZOCOR [Suspect]
     Indication: TYPE IIB HYPERLIPIDAEMIA
     Route: 048
     Dates: start: 19891001, end: 19920101

REACTIONS (4)
  - ALANINE AMINOTRANSFERASE INCREASED [None]
  - ASPARTATE AMINOTRANSFERASE INCREASED [None]
  - BLOOD CREATINE PHOSPHOKINASE INCREASED [None]
  - POLYMYOSITIS [None]
